FAERS Safety Report 7644105-0 (Version None)
Quarter: 2011Q3

REPORT INFORMATION
  Report Type: 
  Country: None (occurrence: None)
  Receive Date: 20110729
  Receipt Date: 20110721
  Transmission Date: 20111222
  Serious: Yes (Hospitalization)
  Sender: FDA-Public Use
  Company Number: US-JNJFOC-20110102731

PATIENT
  Sex: Female

DRUGS (16)
  1. FENTANYL-100 [Suspect]
     Indication: FIBROMYALGIA
     Dosage: 100 UG/HR+ 25 UG/HR
     Route: 062
     Dates: start: 20090101
  2. DURAGESIC-100 [Suspect]
     Dosage: 100 UG/HR+25 UG/HR
     Route: 062
     Dates: start: 20090101, end: 20090101
  3. DURAGESIC-100 [Suspect]
     Indication: ARTHRITIS
     Route: 062
     Dates: start: 20020101, end: 20090101
  4. DURAGESIC-100 [Suspect]
     Dosage: 100 UG/HR+25 UG/HR
     Route: 062
     Dates: start: 20090101, end: 20090101
  5. FENTANYL-100 [Suspect]
     Indication: BACK PAIN
     Dosage: 100 UG/HR+ 25 UG/HR
     Route: 062
     Dates: start: 20090101
  6. UNSPECIFIED TRAMADOL [Suspect]
     Indication: ARTHRITIS
     Dosage: 2 TABLETS AS NEEDED
     Route: 048
     Dates: start: 20040101
  7. UNSPECIFIED TRAMADOL [Suspect]
     Indication: BACK PAIN
     Dosage: 2 TABLETS AS NEEDED
     Route: 048
     Dates: start: 20040101
  8. FENTANYL-100 [Suspect]
     Indication: INTERVERTEBRAL DISC PROTRUSION
     Dosage: 100 UG/HR+ 25 UG/HR
     Route: 062
     Dates: start: 20090101
  9. DURAGESIC-100 [Suspect]
     Indication: BACK PAIN
     Route: 062
     Dates: start: 20020101, end: 20090101
  10. UNSPECIFIED TRAMADOL [Suspect]
     Indication: FIBROMYALGIA
     Dosage: 2 TABLETS AS NEEDED
     Route: 048
     Dates: start: 20040101
  11. DURAGESIC-100 [Suspect]
     Dosage: 100 UG/HR+25 UG/HR
     Route: 062
     Dates: start: 20090101, end: 20090101
  12. DURAGESIC-100 [Suspect]
     Indication: INTERVERTEBRAL DISC PROTRUSION
     Route: 062
     Dates: start: 20020101, end: 20090101
  13. DURAGESIC-100 [Suspect]
     Indication: FIBROMYALGIA
     Route: 062
     Dates: start: 20020101, end: 20090101
  14. UNSPECIFIED TRAMADOL [Suspect]
     Indication: INTERVERTEBRAL DISC PROTRUSION
     Dosage: 2 TABLETS AS NEEDED
     Route: 048
     Dates: start: 20040101
  15. FENTANYL-100 [Suspect]
     Indication: ARTHRITIS
     Dosage: 100 UG/HR+ 25 UG/HR
     Route: 062
     Dates: start: 20090101
  16. DURAGESIC-100 [Suspect]
     Dosage: 100 UG/HR+25 UG/HR
     Route: 062
     Dates: start: 20090101, end: 20090101

REACTIONS (2)
  - MYOCARDIAL INFARCTION [None]
  - MEMORY IMPAIRMENT [None]
